FAERS Safety Report 9025404 (Version 1)
Quarter: 2013Q1

REPORT INFORMATION
  Report Type: Spontaneous
  Country: US (occurrence: US)
  Receive Date: 20130122
  Receipt Date: 20130122
  Transmission Date: 20140127
  Serious: No
  Sender: FDA-Public Use
  Company Number: US-OPTIMER PHARMACEUTICALS, INC.-20120139

PATIENT
  Age: 53 Year
  Sex: Female
  Weight: 66.21 kg

DRUGS (4)
  1. DIFICID [Suspect]
     Indication: CLOSTRIDIUM DIFFICILE COLITIS
     Dosage: 200 MG, BID
     Route: 048
     Dates: start: 20121005
  2. FLAGYL [Concomitant]
     Indication: CLOSTRIDIUM DIFFICILE COLITIS
     Dosage: 500 MG, TID
     Route: 048
     Dates: start: 20120922, end: 20121005
  3. LANTUS [Concomitant]
     Indication: DIABETES MELLITUS
     Dosage: 10 UNITS, QD
     Route: 058
     Dates: start: 2003
  4. HUMULIN R [Concomitant]
     Indication: DIABETES MELLITUS
     Dosage: 5-10UNITS, PRN FOR SUGAR ABOVE 150
     Route: 058
     Dates: start: 2003

REACTIONS (4)
  - Pain in extremity [Not Recovered/Not Resolved]
  - Alopecia [Not Recovered/Not Resolved]
  - Hypoaesthesia [Not Recovered/Not Resolved]
  - Muscular weakness [Not Recovered/Not Resolved]
